FAERS Safety Report 10201276 (Version 2)
Quarter: 2014Q2

REPORT INFORMATION
  Report Type: Spontaneous
  Country: DE (occurrence: DE)
  Receive Date: 20140528
  Receipt Date: 20140606
  Transmission Date: 20141212
  Serious: Yes (Other)
  Sender: FDA-Public Use
  Company Number: DE-VERTEX PHARMACEUTICALS INC-2014-002523

PATIENT
  Age: 61 Year
  Sex: Female
  Weight: 72 kg

DRUGS (5)
  1. INCIVO [Suspect]
     Indication: ANTIVIRAL PROPHYLAXIS
     Route: 065
  2. INCIVO [Suspect]
     Indication: HEPATITIS C
     Dosage: 750 MG, TID
     Route: 065
  3. TACROLIMUS [Interacting]
     Indication: IMMUNOSUPPRESSION
     Dosage: UNK
     Route: 065
  4. PEGINTERFERON ALFA-2A [Concomitant]
     Indication: ANTIVIRAL PROPHYLAXIS
     Dosage: 180 ?G, QW
     Route: 065
  5. RIBAVIRIN [Concomitant]
     Indication: ANTIVIRAL PROPHYLAXIS
     Dosage: DOSAGE FORM: UNSPECIFIED, TREATMENT?AT 8 WEEK WAS 800 MG/DAY AND TREATMENT AT 12 WEEK WAS 1000 MG/D
     Route: 065

REACTIONS (3)
  - Drug interaction [Unknown]
  - Anaemia [Unknown]
  - Off label use [Unknown]
